FAERS Safety Report 6322938-0 (Version None)
Quarter: 2009Q3

REPORT INFORMATION
  Report Type: 
  Country: None (occurrence: None)
  Receive Date: 20090824
  Receipt Date: 20090219
  Transmission Date: 20100115
  Serious: No
  Sender: FDA-Public Use
  Company Number: US-ABBOTT-09P-163-0558689-00

PATIENT
  Sex: Female
  Weight: 96.702 kg

DRUGS (7)
  1. NIASPAN [Suspect]
     Indication: BLOOD TRIGLYCERIDES INCREASED
     Route: 048
     Dates: start: 20080901, end: 20081001
  2. NIASPAN [Suspect]
     Route: 048
     Dates: start: 20081101, end: 20090201
  3. SIMVASTATIN [Concomitant]
     Indication: BLOOD CHOLESTEROL INCREASED
     Route: 048
  4. FISH OIL [Concomitant]
     Indication: MEDICAL DIET
     Route: 047
  5. VITAMIN D [Concomitant]
     Indication: NAUSEA
     Route: 048
  6. MULTI-VITAMIN [Concomitant]
     Indication: MEDICAL DIET
     Dosage: UNKNOWN
     Route: 048
  7. ASPIRIN [Concomitant]
     Indication: CARDIOVASCULAR EVENT PROPHYLAXIS
     Route: 048

REACTIONS (4)
  - FLUSHING [None]
  - LIP SWELLING [None]
  - PRURITUS [None]
  - TONGUE DISORDER [None]
